FAERS Safety Report 5706947-8 (Version None)
Quarter: 2008Q2

REPORT INFORMATION
  Report Type: 
  Country: None (occurrence: None)
  Receive Date: 20080415
  Receipt Date: 20080415
  Transmission Date: 20081010
  Serious: Yes (Death)
  Sender: FDA-Public Use
  Company Number: None

PATIENT
  Age: 51 Year
  Sex: Female
  Weight: 49.8957 kg

DRUGS (1)
  1. DURAGESIC-50 [Suspect]
     Indication: PAIN MANAGEMENT
     Dosage: 50 MCG EVERY THREE DAYS CUTANEOUS
     Route: 003

REACTIONS (4)
  - AMNESIA [None]
  - OVERDOSE [None]
  - RESPIRATORY ARREST [None]
  - SOMNOLENCE [None]
